FAERS Safety Report 20902514 (Version 1)
Quarter: 2022Q2

REPORT INFORMATION
  Report Type: Spontaneous
  Country: IN (occurrence: IN)
  Receive Date: 20220601
  Receipt Date: 20220601
  Transmission Date: 20220721
  Serious: Yes (Hospitalization)
  Sender: FDA-Public Use
  Company Number: IN-ENDO PHARMACEUTICALS INC-2022-003246

PATIENT
  Age: 23 Year
  Sex: Male

DRUGS (3)
  1. COLY-MYCIN M [Suspect]
     Active Substance: COLISTIMETHATE SODIUM
     Indication: Acinetobacter infection
     Dosage: 9 MILLION UNIT, SINGLE (LOADING DOSE)
     Route: 042
  2. COLY-MYCIN M [Suspect]
     Active Substance: COLISTIMETHATE SODIUM
     Dosage: 3 MILLION UNIT, TID (8 HOURLY)
     Route: 042
  3. MEROPENEM [Concomitant]
     Active Substance: MEROPENEM
     Indication: Acinetobacter infection
     Dosage: 1 G, TID (8 HOURLY)
     Route: 051

REACTIONS (1)
  - Pseudo-Bartter syndrome [Recovered/Resolved]
